FAERS Safety Report 17970496 (Version 1)
Quarter: 2020Q3

REPORT INFORMATION
  Report Type: Other
  Country: FR (occurrence: FR)
  Receive Date: 20200702
  Receipt Date: 20200702
  Transmission Date: 20201104
  Serious: Yes (Other)
  Sender: FDA-Public Use
  Company Number: FR-CELLTRION INC.-2020FR023309

PATIENT

DRUGS (12)
  1. RITUXIMAB (UNKNOWN) [Suspect]
     Active Substance: RITUXIMAB
     Indication: DIFFUSE LARGE B-CELL LYMPHOMA
     Dosage: 375 MG/M2 (CYCLE 1)
     Route: 065
     Dates: start: 20200217
  2. POLATUZUMAB VEDOTIN. [Suspect]
     Active Substance: POLATUZUMAB VEDOTIN
     Dosage: 1.8 MG/KG (CYCLE 3)
     Route: 065
     Dates: start: 20200331
  3. BENDAMUSTINE [Suspect]
     Active Substance: BENDAMUSTINE
     Indication: DIFFUSE LARGE B-CELL LYMPHOMA
     Dosage: 90 MG/M2 (CYCLE 1)
     Route: 065
     Dates: start: 20200218
  4. POLATUZUMAB VEDOTIN. [Suspect]
     Active Substance: POLATUZUMAB VEDOTIN
     Indication: DIFFUSE LARGE B-CELL LYMPHOMA
     Dosage: (1.8 MG/KG) CYCLE 1
     Route: 065
     Dates: start: 20200217
  5. POLATUZUMAB VEDOTIN. [Suspect]
     Active Substance: POLATUZUMAB VEDOTIN
     Dosage: 1.8 MG/KG (CYCLE 4)
     Route: 065
     Dates: start: 20200427
  6. RITUXIMAB (UNKNOWN) [Suspect]
     Active Substance: RITUXIMAB
     Dosage: 375 MG/M2 (CYCLE 4)
     Route: 065
     Dates: start: 20200427
  7. POLATUZUMAB VEDOTIN. [Suspect]
     Active Substance: POLATUZUMAB VEDOTIN
     Dosage: 1.8 MG/KG (CYCLE 2)
     Route: 065
     Dates: start: 20200310
  8. BENDAMUSTINE [Suspect]
     Active Substance: BENDAMUSTINE
     Dosage: 90 MG/M2 (CYCLE 2)
     Route: 065
     Dates: start: 20200310
  9. BENDAMUSTINE [Suspect]
     Active Substance: BENDAMUSTINE
     Dosage: 90 MG/M2 (CYCLE 3)
     Route: 065
     Dates: start: 20200331
  10. BENDAMUSTINE [Suspect]
     Active Substance: BENDAMUSTINE
     Dosage: 50 MG/M2 (CYCLE 4)
     Route: 065
     Dates: start: 20200427
  11. RITUXIMAB (UNKNOWN) [Suspect]
     Active Substance: RITUXIMAB
     Dosage: 375 MG/M2 (CYCLE 2)
     Route: 065
     Dates: start: 20200310
  12. RITUXIMAB (UNKNOWN) [Suspect]
     Active Substance: RITUXIMAB
     Dosage: 375 MG/M2 (CYCLE 3)
     Route: 065
     Dates: start: 20200331

REACTIONS (3)
  - Thrombocytopenia [Unknown]
  - Haematotoxicity [Unknown]
  - Asthenia [Unknown]
